FAERS Safety Report 7375137-8 (Version None)
Quarter: 2011Q1

REPORT INFORMATION
  Report Type: 
  Country: None (occurrence: None)
  Receive Date: 20110325
  Receipt Date: 20110322
  Transmission Date: 20110831
  Serious: Yes (Hospitalization)
  Sender: FDA-Public Use
  Company Number: ES-ROCHE-731764

PATIENT
  Sex: Male
  Weight: 70 kg

DRUGS (13)
  1. 5-FLUOROURACIL [Suspect]
     Dosage: FORM: BOLUS, LAST DOSE PRIOR TO SAE: 21 SEPTEMBER 2010,  TEMPORARILY INTERRUPTED
     Route: 040
     Dates: start: 20100113, end: 20101005
  2. BEVACIZUMAB [Suspect]
     Dosage: PERMANANTLY DISCONTINUED
     Route: 042
     Dates: end: 20101029
  3. 5-FLUOROURACIL [Suspect]
     Dosage: DOSAGE FORM: INFUSION.
     Route: 040
     Dates: start: 20100113, end: 20100921
  4. IRINOTECAN HYDROCHLORIDE [Suspect]
     Dosage: LAST DOSE PRIOR TO SAE: 21 SEPTEMBER 2010, TEMPORARILY INTERRUPTED  FORM: INFUSION
     Route: 042
     Dates: start: 20100113, end: 20101005
  5. IRINOTECAN HYDROCHLORIDE [Suspect]
     Dosage: PERMANANTLY DISCONTINUED
     Route: 042
     Dates: end: 20101029
  6. LEUCOVORIN [Suspect]
     Dosage: PERMANENTLY DISCONTINUED.
     Route: 042
     Dates: end: 20101129
  7. GABAPENTINA [Concomitant]
     Dates: start: 20100209, end: 20101005
  8. OMEPRAZOLE [Concomitant]
     Dates: start: 20100126
  9. LEUCOVORIN [Suspect]
     Dosage: LAST DOSE PRIOR TO SAE: 21 SEPTEMBER 2010, FORM: INFUSION TEMPORARILY INTERRUPTED
     Route: 042
     Dates: start: 20090113, end: 20101005
  10. POLARAMINE [Concomitant]
     Dates: start: 20100906, end: 20100906
  11. TRYPTIZOL [Concomitant]
     Dates: start: 20100209, end: 20101005
  12. BEVACIZUMAB [Suspect]
     Dosage: LAST DOSE PRIOR TO SAE: 21 SEPTEMBER 2010, FORM: INFUSION, TEMPORARILY INTERRUPTED
     Route: 042
     Dates: start: 20100113, end: 20101005
  13. 5-FLUOROURACIL [Suspect]
     Dosage: PERMANANTLY DISCONTINUED
     Route: 040
     Dates: end: 20101129

REACTIONS (1)
  - GASTROINTESTINAL OBSTRUCTION [None]
